FAERS Safety Report 12850845 (Version 1)
Quarter: 2016Q4

REPORT INFORMATION
  Report Type: Spontaneous
  Country: FR (occurrence: FR)
  Receive Date: 20161014
  Receipt Date: 20161014
  Transmission Date: 20170207
  Serious: Yes (Life-Threatening, Hospitalization, Other)
  Sender: FDA-Public Use
  Company Number: FR-ASTRAZENECA-2016SF08462

PATIENT
  Age: 26044 Day
  Sex: Female

DRUGS (11)
  1. SULFARLEM [Concomitant]
     Active Substance: ANETHOLTRITHION
  2. DIFFU K [Concomitant]
     Active Substance: POTASSIUM CHLORIDE
  3. TAHOR [Concomitant]
     Active Substance: ATORVASTATIN CALCIUM
  4. GLUCOPHAGE [Concomitant]
     Active Substance: METFORMIN HYDROCHLORIDE
  5. CYMBALTA [Concomitant]
     Active Substance: DULOXETINE HYDROCHLORIDE
  6. INEXIUM [Concomitant]
     Active Substance: ESOMEPRAZOLE
  7. XEROQUEL [Suspect]
     Active Substance: QUETIAPINE FUMARATE
     Indication: BIPOLAR DISORDER
     Route: 048
     Dates: end: 20160907
  8. LEXOMIL [Concomitant]
     Active Substance: BROMAZEPAM
  9. STILNOX [Concomitant]
     Active Substance: ZOLPIDEM TARTRATE
  10. LEVOTHYROX [Concomitant]
     Active Substance: LEVOTHYROXINE
  11. N-ACETYLCYSTEINE [Concomitant]
     Active Substance: ACETYLCYSTEINE
     Dates: start: 20160903, end: 20160903

REACTIONS (10)
  - Poisoning [Unknown]
  - Decreased appetite [Unknown]
  - Asthenia [Unknown]
  - Leukopenia [Recovered/Resolved]
  - Somnolence [Unknown]
  - Alanine aminotransferase increased [Unknown]
  - Aspartate aminotransferase increased [Unknown]
  - Anaemia [Unknown]
  - Confusional state [Unknown]
  - Neutropenia [Recovered/Resolved]

NARRATIVE: CASE EVENT DATE: 20160902
